FAERS Safety Report 21665993 (Version 2)
Quarter: 2022Q4

REPORT INFORMATION
  Report Type: Spontaneous
  Country: PL (occurrence: PL)
  Receive Date: 20221201
  Receipt Date: 20221216
  Transmission Date: 20230113
  Serious: Yes (Other)
  Sender: FDA-Public Use
  Company Number: PL-TEVA-2022-PL-2062360

PATIENT
  Age: 68 Year
  Sex: Female

DRUGS (1)
  1. HYDROXYUREA [Suspect]
     Active Substance: HYDROXYUREA
     Indication: Product used for unknown indication
     Route: 048
     Dates: start: 1995

REACTIONS (22)
  - Choking [Not Recovered/Not Resolved]
  - Product use complaint [Unknown]
  - Apathy [Recovered/Resolved with Sequelae]
  - Throat irritation [Unknown]
  - Pharyngeal erythema [Unknown]
  - Blood uric acid increased [Unknown]
  - Blood triglycerides increased [Unknown]
  - Vitamin B12 increased [Unknown]
  - Asthenia [Not Recovered/Not Resolved]
  - Headache [Not Recovered/Not Resolved]
  - Anxiety [Not Recovered/Not Resolved]
  - Pharmacophobia [Not Recovered/Not Resolved]
  - Abdominal pain upper [Unknown]
  - White blood cell count increased [Unknown]
  - Full blood count increased [Unknown]
  - Splenomegaly [Unknown]
  - Bone pain [Unknown]
  - Pruritus [Unknown]
  - Hyperhidrosis [Unknown]
  - Off label use [Unknown]
  - Product size issue [Unknown]
  - Product physical issue [Unknown]

NARRATIVE: CASE EVENT DATE: 20220801
